FAERS Safety Report 13889760 (Version 1)
Quarter: 2017Q3

REPORT INFORMATION
  Report Type: Spontaneous
  Country: US (occurrence: None)
  Receive Date: 20170816
  Receipt Date: 20170816
  Transmission Date: 20171127
  Serious: Yes (Life-Threatening)
  Sender: FDA-Public Use
  Company Number: None

PATIENT
  Age: 67 Year
  Sex: Female
  Weight: 52.62 kg

DRUGS (8)
  1. VENETOCLAX. [Suspect]
     Active Substance: VENETOCLAX
     Indication: CHRONIC LYMPHOCYTIC LEUKAEMIA
     Dosage: 4 CAPS FOR TOTAL DOSE OF 400 MG DAILY ORAL
     Route: 048
     Dates: start: 20170315, end: 20170718
  2. VITAMIN D [Concomitant]
     Active Substance: CHOLECALCIFEROL
  3. COJUGATED ESTROGEN [Concomitant]
  4. PROGESTERONE. [Concomitant]
     Active Substance: PROGESTERONE
  5. IBUPROFEN. [Concomitant]
     Active Substance: IBUPROFEN
  6. TOPROL XL [Concomitant]
     Active Substance: METOPROLOL SUCCINATE
  7. IVIG [Concomitant]
     Active Substance: HUMAN IMMUNOGLOBULIN G
  8. ACYCLOVIR. [Concomitant]
     Active Substance: ACYCLOVIR

REACTIONS (5)
  - Bone marrow failure [None]
  - Infection [None]
  - Pancytopenia [None]
  - Aplastic anaemia [None]
  - Myelodysplastic syndrome [None]

NARRATIVE: CASE EVENT DATE: 20170718
